FAERS Safety Report 6143777-X (Version None)
Quarter: 2009Q2

REPORT INFORMATION
  Report Type: 
  Country: None (occurrence: None)
  Receive Date: 20090403
  Receipt Date: 20090326
  Transmission Date: 20091009
  Serious: Yes (Other)
  Sender: FDA-Public Use
  Company Number: PHHY2009DE12258

PATIENT

DRUGS (2)
  1. EXELON [Suspect]
     Indication: DEMENTIA
     Dosage: 4.6 MG, QD
     Route: 062
     Dates: start: 20090101
  2. EXELON [Suspect]
     Dosage: 9.5 MG, QD
     Route: 062

REACTIONS (3)
  - DIZZINESS [None]
  - GAIT DISTURBANCE [None]
  - SOMNOLENCE [None]
